FAERS Safety Report 6611608-7 (Version None)
Quarter: 2010Q1

REPORT INFORMATION
  Report Type: 
  Country: None (occurrence: None)
  Receive Date: 20100303
  Receipt Date: 20100223
  Transmission Date: 20100710
  Serious: Yes (Hospitalization)
  Sender: FDA-Public Use
  Company Number: TR-PERRIGO-10TR007376

PATIENT
  Age: 16 Year
  Sex: Female

DRUGS (2)
  1. ACETAMINOPHEN SLOW RELEASE [Suspect]
     Indication: INTENTIONAL OVERDOSE
     Dosage: 8 G, SINGLE
     Route: 048
  2. AMOXICILLIN [Suspect]
     Indication: INTENTIONAL OVERDOSE
     Dosage: 3.5 G, SINGLE
     Route: 048

REACTIONS (4)
  - ABDOMINAL PAIN [None]
  - INTENTIONAL OVERDOSE [None]
  - NAUSEA [None]
  - SUICIDE ATTEMPT [None]
